FAERS Safety Report 19036530 (Version 1)
Quarter: 2021Q1

REPORT INFORMATION
  Report Type: Spontaneous
  Country: US (occurrence: US)
  Receive Date: 20210319
  Receipt Date: 20210319
  Transmission Date: 20210420
  Serious: Yes (Death, Hospitalization)
  Sender: FDA-Public Use
  Company Number: None

PATIENT
  Age: 81 Year
  Sex: Male
  Weight: 72.12 kg

DRUGS (1)
  1. VANCOMYCIN (VANCOMYCIN HCL 1.5GM/VIL INJ) [Suspect]
     Active Substance: VANCOMYCIN
     Indication: STAPHYLOCOCCAL INFECTION
     Dates: start: 20190302, end: 20190306

REACTIONS (8)
  - Staphylococcal infection [None]
  - Immunosuppression [None]
  - Acinetobacter infection [None]
  - Drug level increased [None]
  - Condition aggravated [None]
  - Sepsis [None]
  - Blood creatinine increased [None]
  - Blood urea increased [None]

NARRATIVE: CASE EVENT DATE: 20190309
